FAERS Safety Report 23862834 (Version 1)
Quarter: 2024Q2

REPORT INFORMATION
  Report Type: Spontaneous
  Country: US (occurrence: None)
  Receive Date: 20240515
  Receipt Date: 20240515
  Transmission Date: 20240716
  Serious: No
  Sender: FDA-Public Use
  Company Number: None

PATIENT
  Age: 23 Year
  Sex: Female

DRUGS (1)
  1. HALOPERIDOL [Suspect]
     Active Substance: HALOPERIDOL

REACTIONS (4)
  - Transcription medication error [None]
  - Product dispensing error [None]
  - Incorrect dose administered [None]
  - Somnolence [None]

NARRATIVE: CASE EVENT DATE: 20240513
